FAERS Safety Report 4917687-7 (Version None)
Quarter: 2006Q1

REPORT INFORMATION
  Report Type: 
  Country: None (occurrence: None)
  Receive Date: 20060221
  Receipt Date: 20060119
  Transmission Date: 20060701
  Serious: Yes (Hospitalization)
  Sender: FDA-Public Use
  Company Number: SE-ROCHE-432832

PATIENT
  Age: 17 Year
  Sex: Male

DRUGS (1)
  1. ROACCUTAN [Suspect]
     Indication: ACNE
     Route: 065
     Dates: start: 19950615

REACTIONS (4)
  - ARTHRALGIA [None]
  - FATIGUE [None]
  - HAEMORRHAGE [None]
  - MYALGIA [None]
